FAERS Safety Report 7646692-5 (Version None)
Quarter: 2011Q3

REPORT INFORMATION
  Report Type: 
  Country: None (occurrence: None)
  Receive Date: 20110801
  Receipt Date: 20110725
  Transmission Date: 20111222
  Serious: Yes (Other)
  Sender: FDA-Public Use
  Company Number: US-AMGEN-USASP2011037825

PATIENT
  Sex: Female

DRUGS (2)
  1. NPLATE [Suspect]
     Indication: IDIOPATHIC THROMBOCYTOPENIC PURPURA
     Dates: start: 20101221
  2. IMMUNE GLOBULIN NOS [Concomitant]

REACTIONS (2)
  - BONE MARROW RETICULIN FIBROSIS [None]
  - BIOPSY BONE MARROW ABNORMAL [None]
